FAERS Safety Report 7762526-2 (Version None)
Quarter: 2011Q3

REPORT INFORMATION
  Report Type: 
  Country: None (occurrence: None)
  Receive Date: 20110920
  Receipt Date: 20110916
  Transmission Date: 20111222
  Serious: Yes (Hospitalization)
  Sender: FDA-Public Use
  Company Number: US-ABBOTT-11P-163-0854651-00

PATIENT
  Sex: Female
  Weight: 115.32 kg

DRUGS (10)
  1. TRILIPIX [Concomitant]
     Indication: BLOOD CHOLESTEROL INCREASED
  2. METFORMIN HCL [Concomitant]
     Indication: DIABETES MELLITUS
  3. HUMIRA [Interacting]
     Dates: start: 20110701
  4. JANUVIA [Concomitant]
     Indication: DIABETES MELLITUS
  5. TOPAMAX [Concomitant]
     Indication: MIGRAINE
  6. ADVAIR DISKUS 100/50 [Concomitant]
     Indication: PRODUCT USED FOR UNKNOWN INDICATION
  7. METHOTREXATE [Interacting]
     Indication: PRODUCT USED FOR UNKNOWN INDICATION
  8. HUMIRA [Suspect]
     Indication: PRODUCT USED FOR UNKNOWN INDICATION
     Dates: start: 20110101, end: 20110701
  9. SINGULAIR [Concomitant]
     Indication: PRODUCT USED FOR UNKNOWN INDICATION
  10. CRESTOR [Concomitant]
     Indication: PRODUCT USED FOR UNKNOWN INDICATION

REACTIONS (11)
  - CRYING [None]
  - ABDOMINAL PAIN [None]
  - PAIN [None]
  - HEPATIC ENZYME INCREASED [None]
  - DRUG INTERACTION [None]
  - INJECTION SITE PAIN [None]
  - INFLUENZA [None]
  - PAIN IN EXTREMITY [None]
  - SKIN WARM [None]
  - DIABETES MELLITUS [None]
  - FATIGUE [None]
